FAERS Safety Report 8042464-0 (Version None)
Quarter: 2012Q1

REPORT INFORMATION
  Report Type: 
  Country: None (occurrence: None)
  Receive Date: 20120112
  Receipt Date: 20120105
  Transmission Date: 20120608
  Serious: No
  Sender: FDA-Public Use
  Company Number: US-PFIZER INC-2012004010

PATIENT
  Sex: Female
  Weight: 72.562 kg

DRUGS (5)
  1. CHANTIX [Suspect]
     Dosage: UNK
     Route: 048
  2. PAXIL [Concomitant]
     Indication: DEPRESSION
     Dosage: UNK
  3. CHANTIX [Suspect]
     Indication: SMOKING CESSATION THERAPY
     Dosage: 0.5 MG, 1X/DAY
     Route: 048
  4. CHANTIX [Suspect]
     Dosage: UNK
     Route: 048
  5. CHANTIX [Suspect]
     Dosage: 0.5 MG, 1X/DAY
     Route: 048

REACTIONS (4)
  - ANXIETY [None]
  - VOMITING [None]
  - RETCHING [None]
  - ABNORMAL DREAMS [None]
